FAERS Safety Report 8321594-X (Version None)
Quarter: 2012Q2

REPORT INFORMATION
  Report Type: 
  Country: None (occurrence: None)
  Receive Date: 20120430
  Receipt Date: 20091020
  Transmission Date: 20120825
  Serious: No
  Sender: FDA-Public Use
  Company Number: US-TEVA-2009011714

PATIENT
  Sex: Female
  Weight: 89 kg

DRUGS (6)
  1. NUVIGIL [Suspect]
     Indication: SOMNOLENCE
     Dosage: 150 MILLIGRAM;
     Route: 048
     Dates: start: 20091014, end: 20091019
  2. PREVACID [Concomitant]
     Dates: start: 20080101
  3. COLCHICINE [Concomitant]
     Dates: start: 20090801
  4. POLYETHYLENE GLYCOL [Concomitant]
     Dates: start: 20070101
  5. VITAMIN D [Concomitant]
     Dates: start: 20090401
  6. PRAVASTATIN [Concomitant]
     Dates: start: 20090101

REACTIONS (8)
  - ABDOMINAL SYMPTOM [None]
  - MOOD ALTERED [None]
  - MEMORY IMPAIRMENT [None]
  - LOGORRHOEA [None]
  - DISTURBANCE IN ATTENTION [None]
  - MANIA [None]
  - DRY MOUTH [None]
  - ORAL PAIN [None]
